FAERS Safety Report 22168514 (Version 1)
Quarter: 2023Q2

REPORT INFORMATION
  Report Type: Spontaneous
  Country: CA (occurrence: CA)
  Receive Date: 20230403
  Receipt Date: 20230403
  Transmission Date: 20230722
  Serious: Yes (Life-Threatening, Hospitalization)
  Sender: FDA-Public Use
  Company Number: CA-PFIZER INC-202300141120

PATIENT
  Age: 41 Year
  Sex: Female
  Weight: 87 kg

DRUGS (3)
  1. ALESSE 28 [Suspect]
     Active Substance: ETHINYL ESTRADIOL\LEVONORGESTREL
     Indication: Heavy menstrual bleeding
     Dosage: 1 DF, 1X/DAY
     Route: 048
  2. SPIKEVAX [Suspect]
     Active Substance: ELASOMERAN
     Indication: COVID-19 immunisation
     Dosage: 0.5 ML, SINGLE
     Route: 030
  3. SPIKEVAX [Suspect]
     Active Substance: ELASOMERAN
     Dosage: 0.5 ML, SINGLE
     Route: 030

REACTIONS (4)
  - Cardiomegaly [Recovering/Resolving]
  - Deep vein thrombosis [Recovering/Resolving]
  - Pulmonary embolism [Recovering/Resolving]
  - Off label use [Unknown]
